FAERS Safety Report 9175503 (Version 1)
Quarter: 2013Q1

REPORT INFORMATION
  Report Type: Spontaneous
  Country: BR (occurrence: BR)
  Receive Date: 20130320
  Receipt Date: 20130320
  Transmission Date: 20140127
  Serious: Yes (Other)
  Sender: FDA-Public Use
  Company Number: BR-PFIZER INC-2013021570

PATIENT
  Age: 53 Year
  Sex: Male
  Weight: 56 kg

DRUGS (7)
  1. SUTENT [Suspect]
     Indication: RENAL CANCER
     Dosage: 50 MG, 1 TABLET, 1X/DAY
     Route: 048
     Dates: start: 20121228
  2. TRAMADOL HYDROCHLORIDE/ACETAMINOPHEN [Suspect]
  3. ULTRACET [Concomitant]
     Dosage: UNK, 3X/DAY, EVERY 8 HOURS
  4. DEXASON [Concomitant]
     Dosage: ^A QUARTER^, 1 DF, 1X/DAY
  5. CENTRUM [Concomitant]
  6. RANIMAX [Concomitant]
     Dosage: ^A QUARTER^, 1 DF, 2X/DAY
  7. CALCIUM OF FISH [Concomitant]
     Dosage: 1 DF, 2X/DAY (AT LUNCH AND AT DINNER)

REACTIONS (13)
  - Delirium [Unknown]
  - Oral pain [Unknown]
  - Mouth injury [Unknown]
  - Erythema [Unknown]
  - Pain [Unknown]
  - Oropharyngeal pain [Unknown]
  - Tongue oedema [Unknown]
  - Abdominal rigidity [Unknown]
  - Muscular weakness [Unknown]
  - Lung disorder [Unknown]
  - Weight increased [Unknown]
  - Therapeutic response unexpected [Unknown]
  - Somnolence [Unknown]
